FAERS Safety Report 10145828 (Version 1)
Quarter: 2014Q2

REPORT INFORMATION
  Report Type: Spontaneous
  Country: US (occurrence: US)
  Receive Date: 20140501
  Receipt Date: 20140501
  Transmission Date: 20141212
  Serious: No
  Sender: FDA-Public Use
  Company Number: US-ABBVIE-13P-163-1152062-00

PATIENT
  Sex: Female
  Weight: 45.4 kg

DRUGS (6)
  1. CREON [Suspect]
     Indication: PANCREATIC INSUFFICIENCY
     Dosage: 1-2 CAPSULES WITH EACH MEAL
     Route: 048
     Dates: start: 2009
  2. LANTUS [Concomitant]
     Indication: DIABETES MELLITUS
  3. HUMALOG [Concomitant]
     Indication: DIABETES MELLITUS
  4. NORVASC [Concomitant]
     Indication: HYPERTENSION
  5. ENALAPRIL [Concomitant]
     Indication: HYPERTENSION
  6. EYE VITAMIN [Concomitant]
     Indication: MACULAR DEGENERATION

REACTIONS (3)
  - Abdominal distension [Not Recovered/Not Resolved]
  - Flatulence [Not Recovered/Not Resolved]
  - Gastrointestinal infection [Not Recovered/Not Resolved]
